APPROVED DRUG PRODUCT: PRAMOSONE
Active Ingredient: HYDROCORTISONE ACETATE; PRAMOXINE HYDROCHLORIDE
Strength: 1%;1%
Dosage Form/Route: LOTION;TOPICAL
Application: A085980 | Product #001
Applicant: LEGACY PHARMA INC
Approved: Approved Prior to Jan 1, 1982 | RLD: No | RS: No | Type: RX